FAERS Safety Report 14456004 (Version 1)
Quarter: 2018Q1

REPORT INFORMATION
  Report Type: Spontaneous
  Country: US (occurrence: US)
  Receive Date: 20180130
  Receipt Date: 20180130
  Transmission Date: 20180509
  Serious: Yes (Other)
  Sender: FDA-Public Use
  Company Number: US-ROCHE-2057618

PATIENT
  Age: 6 Year
  Sex: Female

DRUGS (1)
  1. TAMIFLU [Suspect]
     Active Substance: OSELTAMIVIR PHOSPHATE
     Indication: INFLUENZA
     Route: 065

REACTIONS (5)
  - Suicidal behaviour [Unknown]
  - Abnormal behaviour [Unknown]
  - Intentional self-injury [Unknown]
  - Psychotic disorder [Unknown]
  - Hallucination [Unknown]
